FAERS Safety Report 8100262-3 (Version None)
Quarter: 2012Q1

REPORT INFORMATION
  Report Type: 
  Country: None (occurrence: None)
  Receive Date: 20120131
  Receipt Date: 20120131
  Transmission Date: 20120608
  Serious: Yes (Hospitalization)
  Sender: FDA-Public Use
  Company Number: US-JNJFOC-20120111826

PATIENT
  Sex: Female
  Weight: 117.94 kg

DRUGS (2)
  1. METHOTREXATE [Concomitant]
     Indication: RHEUMATOID ARTHRITIS
     Route: 048
  2. SIMPONI [Suspect]
     Indication: RHEUMATOID ARTHRITIS
     Route: 058
     Dates: start: 20110101

REACTIONS (5)
  - DEVICE MALFUNCTION [None]
  - INFLUENZA [None]
  - ASTHMA [None]
  - RHEUMATOID ARTHRITIS [None]
  - DRUG DOSE OMISSION [None]
